FAERS Safety Report 13121702 (Version 1)
Quarter: 2017Q1

REPORT INFORMATION
  Report Type: Spontaneous
  Country: US (occurrence: US)
  Receive Date: 20170117
  Receipt Date: 20170117
  Transmission Date: 20170428
  Serious: Yes (Other)
  Sender: FDA-Public Use
  Company Number: US-JNJFOC-20170111169

PATIENT
  Age: 70 Year
  Sex: Female

DRUGS (11)
  1. LEVAQUIN [Suspect]
     Active Substance: LEVOFLOXACIN
     Indication: BRONCHITIS
     Dosage: FOR 10 DAYS
     Route: 048
     Dates: start: 20041210
  2. LEVAQUIN [Suspect]
     Active Substance: LEVOFLOXACIN
     Indication: BRONCHITIS
     Dosage: FOR 10 DAYS
     Route: 048
     Dates: start: 20120126
  3. LEVAQUIN [Suspect]
     Active Substance: LEVOFLOXACIN
     Indication: BRONCHITIS
     Dosage: FOR 10 DAYS
     Route: 048
     Dates: start: 20151105
  4. LEVAQUIN [Suspect]
     Active Substance: LEVOFLOXACIN
     Indication: BRONCHITIS
     Dosage: FOR 10 DAYS
     Route: 048
     Dates: start: 20141210
  5. LEVAQUIN [Suspect]
     Active Substance: LEVOFLOXACIN
     Indication: BRONCHITIS
     Dosage: FOR 10 DAYS
     Route: 048
     Dates: start: 20151203
  6. LEVAQUIN [Suspect]
     Active Substance: LEVOFLOXACIN
     Indication: BRONCHITIS
     Dosage: FOR 10 DAYS
     Route: 048
     Dates: start: 20070524
  7. LEVAQUIN [Suspect]
     Active Substance: LEVOFLOXACIN
     Indication: BRONCHITIS
     Dosage: FOR 10 DAYS
     Route: 048
     Dates: start: 20071119
  8. LEVAQUIN [Suspect]
     Active Substance: LEVOFLOXACIN
     Indication: BRONCHITIS
     Dosage: FOR 10 DAYS
     Route: 048
     Dates: start: 20111102
  9. LEVAQUIN [Suspect]
     Active Substance: LEVOFLOXACIN
     Indication: BRONCHITIS
     Dosage: FOR 10 DAYS
     Route: 048
     Dates: start: 20031201
  10. LEVAQUIN [Suspect]
     Active Substance: LEVOFLOXACIN
     Indication: BRONCHITIS
     Dosage: FOR 3 DAYS
     Route: 048
     Dates: start: 20070907
  11. DIFLUCAN [Suspect]
     Active Substance: FLUCONAZOLE
     Indication: PRODUCT USED FOR UNKNOWN INDICATION
     Route: 065
     Dates: start: 20150113

REACTIONS (3)
  - Aortic aneurysm [Unknown]
  - Candida infection [Unknown]
  - Arrhythmia [Unknown]

NARRATIVE: CASE EVENT DATE: 201501
